FAERS Safety Report 9364165 (Version 1)
Quarter: 2013Q2

REPORT INFORMATION
  Report Type: Spontaneous
  Country: ES (occurrence: ES)
  Receive Date: 20130624
  Receipt Date: 20130624
  Transmission Date: 20140414
  Serious: Yes (Other)
  Sender: FDA-Public Use
  Company Number: ES-TEVA-412008ISR

PATIENT
  Age: 75 Year
  Sex: Female

DRUGS (1)
  1. ACIDO ALENDRONICO SEMANA RATIOPHARM 70 MG COMPRIMIDOS [Suspect]
     Route: 048
     Dates: start: 2006

REACTIONS (6)
  - Osteonecrosis of jaw [Not Recovered/Not Resolved]
  - Oral cavity fistula [Not Recovered/Not Resolved]
  - Sinusitis [Not Recovered/Not Resolved]
  - Rhinorrhoea [Not Recovered/Not Resolved]
  - Swelling face [Not Recovered/Not Resolved]
  - Purulent discharge [Not Recovered/Not Resolved]
